FAERS Safety Report 4294896-4 (Version None)
Quarter: 2004Q1

REPORT INFORMATION
  Report Type: 
  Country: None (occurrence: None)
  Receive Date: 20040216
  Receipt Date: 20030131
  Transmission Date: 20041129
  Serious: Yes (Life-Threatening, Hospitalization)
  Sender: FDA-Public Use
  Company Number: US-GLAXOSMITHKLINE-A0396785A

PATIENT
  Age: 28 Year
  Sex: Female

DRUGS (4)
  1. LAMICTAL [Suspect]
     Indication: BIPOLAR DISORDER
     Dosage: 50MG TWICE PER DAY
     Route: 048
     Dates: start: 20021230, end: 20030101
  2. DEPAKOTE [Suspect]
     Indication: BIPOLAR DISORDER
     Dosage: 1000MG AT NIGHT
     Route: 048
     Dates: start: 20010205
  3. WELLBUTRIN [Concomitant]
     Indication: BIPOLAR DISORDER
     Dosage: 150MG PER DAY
     Route: 048
     Dates: start: 20010924
  4. LITHOBID [Concomitant]
     Indication: BIPOLAR DISORDER
     Dosage: 300MG TWICE PER DAY
     Route: 048
     Dates: start: 20021028

REACTIONS (4)
  - PYREXIA [None]
  - RASH [None]
  - STEVENS-JOHNSON SYNDROME [None]
  - URTICARIA [None]
